FAERS Safety Report 7378689-7 (Version None)
Quarter: 2011Q1

REPORT INFORMATION
  Report Type: 
  Country: None (occurrence: None)
  Receive Date: 20110328
  Receipt Date: 20110322
  Transmission Date: 20110831
  Serious: Yes (Disabling)
  Sender: FDA-Public Use
  Company Number: IT-GILEAD-2011-0037803

PATIENT
  Sex: Male

DRUGS (4)
  1. IMMUNE GLOBULIN NOS [Suspect]
     Indication: HEPATITIS B
  2. LAMIVUDINE [Concomitant]
     Indication: HEPATITIS B
  3. CYCLOSPORINE [Concomitant]
     Indication: HEPATITIS B
  4. VIREAD [Suspect]
     Indication: HEPATITIS B
     Route: 048
     Dates: start: 20110201, end: 20110314

REACTIONS (1)
  - DIPLOPIA [None]
